FAERS Safety Report 5910330-X (Version None)
Quarter: 2008Q4

REPORT INFORMATION
  Report Type: 
  Country: None (occurrence: None)
  Receive Date: 20081007
  Receipt Date: 20071130
  Transmission Date: 20090506
  Serious: No
  Sender: FDA-Public Use
  Company Number: US-ASTRAZENECA-2007UW27421

PATIENT
  Age: 84 Year
  Sex: Female
  Weight: 63.5 kg

DRUGS (11)
  1. ARIMIDEX [Suspect]
     Indication: BREAST CANCER
     Route: 048
  2. ISOSORBIDE [Concomitant]
  3. ATENOLOL [Concomitant]
  4. ZOCOR [Concomitant]
  5. ASPIRIN [Concomitant]
  6. RANETADINE [Concomitant]
  7. SYNTHROID [Concomitant]
  8. CELEBREX [Concomitant]
  9. TAMOXIFEN CITRATE [Concomitant]
     Route: 048
  10. CENTRUM SILVER [Concomitant]
  11. CALCIUM [Concomitant]

REACTIONS (3)
  - HOT FLUSH [None]
  - MALAISE [None]
  - NAUSEA [None]
